FAERS Safety Report 6392836-5 (Version None)
Quarter: 2009Q4

REPORT INFORMATION
  Report Type: 
  Country: None (occurrence: None)
  Receive Date: 20091007
  Receipt Date: 20090831
  Transmission Date: 20100525
  Serious: No
  Sender: FDA-Public Use
  Company Number: US-ALLERGAN-0912174US

PATIENT
  Age: 67 Year
  Sex: Female

DRUGS (1)
  1. LATISSE [Suspect]
     Indication: GROWTH OF EYELASHES

REACTIONS (2)
  - DRUG ADMINISTRATION ERROR [None]
  - DRUG INEFFECTIVE [None]
